FAERS Safety Report 17359352 (Version 1)
Quarter: 2020Q1

REPORT INFORMATION
  Report Type: Spontaneous
  Country: JP (occurrence: JP)
  Receive Date: 20200203
  Receipt Date: 20200203
  Transmission Date: 20200409
  Serious: Yes (Hospitalization, Other)
  Sender: FDA-Public Use
  Company Number: JP-BRISTOL-MYERS SQUIBB COMPANY-BMS-2020-007251

PATIENT
  Age: 10 Year
  Sex: Male

DRUGS (5)
  1. BETNOVAL G [Concomitant]
     Indication: PRURITUS
     Route: 065
  2. KENACORT-A [Suspect]
     Active Substance: TRIAMCINOLONE ACETONIDE
     Indication: CORNEAL DEPOSITS
     Route: 058
  3. TACROLIMUS. [Concomitant]
     Active Substance: TACROLIMUS
     Indication: DERMATITIS ATOPIC
     Route: 061
  4. BETNOVAL G [Concomitant]
     Indication: ERYTHEMA
     Route: 065
  5. BETNOVAL G [Concomitant]
     Indication: SWELLING OF EYELID
     Route: 065

REACTIONS (1)
  - Blepharitis [Recovering/Resolving]
